FAERS Safety Report 7470480-6 (Version None)
Quarter: 2011Q2

REPORT INFORMATION
  Report Type: 
  Country: None (occurrence: None)
  Receive Date: 20110429
  Receipt Date: 20110414
  Transmission Date: 20111010
  Serious: Yes (Hospitalization, Other)
  Sender: FDA-Public Use
  Company Number: 031396

PATIENT
  Sex: Male

DRUGS (1)
  1. VIMPAT [Suspect]
     Dosage: 50, 100, 125  MG BID

REACTIONS (16)
  - DIPLOPIA [None]
  - ARTHROPATHY [None]
  - MUSCLE TWITCHING [None]
  - DYSPNOEA [None]
  - BALANCE DISORDER [None]
  - POSTURE ABNORMAL [None]
  - VISION BLURRED [None]
  - FEELING DRUNK [None]
  - HYPERHIDROSIS [None]
  - EMOTIONAL DISORDER [None]
  - EYELID FUNCTION DISORDER [None]
  - VISUAL ACUITY REDUCED [None]
  - PULMONARY OEDEMA [None]
  - MUSCULAR WEAKNESS [None]
  - APHONIA [None]
  - LACRIMATION INCREASED [None]
